FAERS Safety Report 6531853-9 (Version None)
Quarter: 2010Q1

REPORT INFORMATION
  Report Type: 
  Country: None (occurrence: None)
  Receive Date: 20100108
  Receipt Date: 20091230
  Transmission Date: 20100710
  Serious: Yes (Hospitalization, Other)
  Sender: FDA-Public Use
  Company Number: US-JNJFOC-20041101099

PATIENT
  Sex: Female
  Weight: 89.36 kg

DRUGS (16)
  1. RISPERDAL [Suspect]
     Indication: MENTAL DISORDER
     Route: 048
     Dates: start: 19990101, end: 19990101
  2. RISPERDAL CONSTA [Concomitant]
     Indication: MENTAL DISORDER
     Route: 030
  3. HALDOL [Concomitant]
     Indication: MENTAL DISORDER
     Route: 030
  4. HALDOL [Concomitant]
     Indication: MENTAL DISORDER
     Route: 048
  5. BENADRYL [Concomitant]
     Route: 048
     Dates: start: 20040101
  6. LORAZEPAM [Concomitant]
     Route: 048
  7. DIOVAN [Concomitant]
     Indication: HYPERTENSION
     Route: 048
     Dates: start: 20041010
  8. METFORMIN [Concomitant]
     Indication: DIABETES MELLITUS
     Route: 065
     Dates: start: 19990101
  9. NPH INSULIN [Concomitant]
     Indication: DIABETES MELLITUS
     Route: 065
     Dates: start: 19990101
  10. REGULAR INSULIN [Concomitant]
     Indication: DIABETES MELLITUS
     Route: 065
     Dates: start: 19990101
  11. METOPROLOL TARTRATE [Concomitant]
     Indication: HYPERTENSION
     Route: 065
  12. ASPIRIN [Concomitant]
     Route: 065
  13. HYDROCHLOROTHIAZIDE [Concomitant]
     Route: 065
  14. TRAZODONE HCL [Concomitant]
     Route: 065
  15. LISINOPRIL [Concomitant]
     Route: 065
  16. AMLODIPINE [Concomitant]
     Route: 065

REACTIONS (14)
  - ABASIA [None]
  - ABORTION SPONTANEOUS [None]
  - BREAST CYST [None]
  - CARDIAC FAILURE CONGESTIVE [None]
  - CARDIAC VALVE DISEASE [None]
  - HYPERTENSION [None]
  - HYPOAESTHESIA [None]
  - MENTAL DISORDER [None]
  - MUSCULOSKELETAL PAIN [None]
  - OFF LABEL USE [None]
  - PAIN IN EXTREMITY [None]
  - PERICARDIAL EFFUSION [None]
  - TYPE 2 DIABETES MELLITUS [None]
  - VAGINAL HAEMORRHAGE [None]
